FAERS Safety Report 25410726 (Version 1)
Quarter: 2025Q2

REPORT INFORMATION
  Report Type: Report from Study
  Country: CN (occurrence: CN)
  Receive Date: 20250609
  Receipt Date: 20250609
  Transmission Date: 20250716
  Serious: Yes (Other)
  Sender: ROCHE
  Company Number: CN-ROCHE-10000200364

PATIENT
  Age: 57 Year
  Sex: Female
  Weight: 73 kg

DRUGS (42)
  1. POLATUZUMAB VEDOTIN [Suspect]
     Active Substance: POLATUZUMAB VEDOTIN
     Indication: Diffuse large B-cell lymphoma
     Route: 042
     Dates: start: 20240718, end: 20240718
  2. POLATUZUMAB VEDOTIN [Suspect]
     Active Substance: POLATUZUMAB VEDOTIN
     Route: 042
     Dates: start: 20240816, end: 20240816
  3. OBINUTUZUMAB [Suspect]
     Active Substance: OBINUTUZUMAB
     Indication: Diffuse large B-cell lymphoma
     Route: 042
     Dates: start: 20240718, end: 20240718
  4. OBINUTUZUMAB [Suspect]
     Active Substance: OBINUTUZUMAB
     Route: 042
     Dates: start: 20240816, end: 20240816
  5. BENDAMUSTINE [Suspect]
     Active Substance: BENDAMUSTINE
     Indication: Diffuse large B-cell lymphoma
     Route: 042
     Dates: start: 20240718, end: 20240720
  6. BENDAMUSTINE [Suspect]
     Active Substance: BENDAMUSTINE
     Route: 042
     Dates: start: 20240816, end: 20240818
  7. METOPROLOL TARTRATE [Concomitant]
     Active Substance: METOPROLOL TARTRATE
     Route: 048
     Dates: start: 20240717
  8. CALCITRIOL [Concomitant]
     Active Substance: CALCITRIOL
     Dosage: CALCIUM SUPPLEMENT
     Route: 048
     Dates: start: 20240717
  9. NIFEDIPINE [Concomitant]
     Active Substance: NIFEDIPINE
     Dosage: NIFEDIPINE GASTROINTESTINAL THERAPEUTIC SYSTEM (GITS)
     Route: 048
     Dates: start: 20240717
  10. FAMCICLOVIR [Concomitant]
     Active Substance: FAMCICLOVIR
     Indication: Prophylaxis
     Route: 048
     Dates: start: 20240717
  11. METHYLCOBALAMIN [Concomitant]
     Active Substance: METHYLCOBALAMIN
     Dosage: TROPHIC NERVE
     Route: 048
     Dates: start: 20240717
  12. SULFAMETHOXAZOLE [Concomitant]
     Active Substance: SULFAMETHOXAZOLE
     Indication: Prophylaxis
     Dosage: 1 TABLET
     Route: 048
     Dates: start: 20240717
  13. CALCIUM CARBONATE [Concomitant]
     Active Substance: CALCIUM CARBONATE
     Indication: Mineral supplementation
     Dosage: CALCIUM SUPPLEMENT
     Route: 048
     Dates: start: 20240717
  14. HUMAN ERYTHROPOIETIN [Concomitant]
     Route: 058
     Dates: start: 20240816, end: 20240816
  15. HUMAN ERYTHROPOIETIN [Concomitant]
     Route: 058
     Dates: start: 20240816, end: 20240820
  16. HUMAN ERYTHROPOIETIN [Concomitant]
     Route: 058
     Dates: start: 20240819, end: 20240819
  17. INSULIN ASPART [Concomitant]
     Active Substance: INSULIN ASPART
     Route: 058
     Dates: start: 20240816, end: 20240816
  18. INSULIN ASPART [Concomitant]
     Active Substance: INSULIN ASPART
     Route: 058
     Dates: start: 20240817, end: 20240817
  19. INSULIN ASPART [Concomitant]
     Active Substance: INSULIN ASPART
     Route: 058
     Dates: start: 20240916, end: 20240916
  20. INSULIN ASPART [Concomitant]
     Active Substance: INSULIN ASPART
     Route: 058
     Dates: start: 20240917, end: 20240919
  21. INSULIN ASPART [Concomitant]
     Active Substance: INSULIN ASPART
     Route: 058
     Dates: start: 20241025, end: 20241029
  22. INSULIN ASPART [Concomitant]
     Active Substance: INSULIN ASPART
     Route: 058
     Dates: start: 20241026, end: 20241026
  23. INSULIN GLARGINE [Concomitant]
     Active Substance: INSULIN GLARGINE
     Route: 058
     Dates: start: 20240817, end: 20240817
  24. INSULIN GLARGINE [Concomitant]
     Active Substance: INSULIN GLARGINE
     Route: 058
     Dates: start: 20240817, end: 20240820
  25. PEGYLATED RECOMBINANT HUMAN GRANULOCYTE COLONY STIMULATING FACTOR [Concomitant]
     Dosage: LEUCOCYTE
     Route: 058
     Dates: start: 20240721, end: 20240722
  26. PEGYLATED RECOMBINANT HUMAN GRANULOCYTE COLONY STIMULATING FACTOR [Concomitant]
     Dosage: LEUCOCYTE
     Route: 058
     Dates: start: 20240819, end: 20240820
  27. PEGYLATED RECOMBINANT HUMAN GRANULOCYTE COLONY STIMULATING FACTOR [Concomitant]
     Dosage: LEUCOCYTE
     Route: 058
     Dates: start: 20240919, end: 20240919
  28. PEGYLATED RECOMBINANT HUMAN GRANULOCYTE COLONY STIMULATING FACTOR [Concomitant]
     Dosage: LEUCOCYTE
     Route: 058
     Dates: start: 20241028, end: 20241029
  29. CEFACLOR [Concomitant]
     Active Substance: CEFACLOR
     Indication: Prophylaxis
     Route: 048
     Dates: start: 20240913, end: 20240919
  30. CHLORHEXIDINE [Concomitant]
     Active Substance: CHLORHEXIDINE
     Dates: start: 20240718, end: 20240722
  31. RECOMBINANT HUMAN THROMBOPOIETIN [Concomitant]
     Active Substance: RECOMBINANT HUMAN THROMBOPOIETIN
     Route: 058
     Dates: start: 20240721, end: 20240722
  32. RECOMBINANT HUMAN THROMBOPOIETIN [Concomitant]
     Active Substance: RECOMBINANT HUMAN THROMBOPOIETIN
     Route: 058
     Dates: start: 20240919, end: 20240919
  33. INSULIN HUMAN [Concomitant]
     Active Substance: INSULIN HUMAN
     Dates: start: 20240718, end: 20240718
  34. INSULIN HUMAN [Concomitant]
     Active Substance: INSULIN HUMAN
     Dates: start: 20240719, end: 20240719
  35. HUMAN ERYTHROPOIETIN [Concomitant]
     Route: 058
     Dates: start: 20240816, end: 20240816
  36. HUMAN ERYTHROPOIETIN [Concomitant]
     Route: 058
     Dates: start: 20240819, end: 20240819
  37. GRANULOCYTE COLONY-STIMULATING FACTOR NOS [Concomitant]
     Active Substance: GRANULOCYTE COLONY-STIMULATING FACTOR NOS
     Route: 058
     Dates: start: 2024
  38. LACTULOSE [Concomitant]
     Active Substance: LACTULOSE
     Route: 048
     Dates: start: 20241027, end: 20241029
  39. SODIUM BICARBONATE [Concomitant]
     Active Substance: SODIUM BICARBONATE
     Route: 048
     Dates: start: 20240718, end: 20240722
  40. POTASSIUM CHLORIDE [Concomitant]
     Active Substance: POTASSIUM CHLORIDE
     Route: 042
     Dates: start: 20240718, end: 20240722
  41. TORSEMIDE [Concomitant]
     Active Substance: TORSEMIDE
     Route: 048
     Dates: start: 20240816, end: 20240819
  42. HUMAN ERYTHROPOIETIN [Concomitant]
     Route: 058
     Dates: start: 20240816, end: 20240820

REACTIONS (11)
  - Urinary tract infection [Recovered/Resolved]
  - Thrombocytopenia [Not Recovered/Not Resolved]
  - Neutrophil count increased [Not Recovered/Not Resolved]
  - Agranulocytosis [Recovered/Resolved]
  - Anaemia [Not Recovered/Not Resolved]
  - Blood lactate dehydrogenase increased [Not Recovered/Not Resolved]
  - Leukopenia [Recovered/Resolved]
  - Monocyte percentage increased [Not Recovered/Not Resolved]
  - Lymphopenia [Recovered/Resolved]
  - Amylase increased [Not Recovered/Not Resolved]
  - Neutrophil count decreased [Recovered/Resolved]

NARRATIVE: CASE EVENT DATE: 20240721
